FAERS Safety Report 14913334 (Version 1)
Quarter: 2018Q2

REPORT INFORMATION
  Report Type: Report from Study
  Country: US (occurrence: BR)
  Receive Date: 20180518
  Receipt Date: 20180518
  Transmission Date: 20180711
  Serious: Yes (Death, Other)
  Sender: FDA-Public Use
  Company Number: US-SUNOVION-2018SUN001985

PATIENT
  Sex: Female

DRUGS (1)
  1. INDACATEROL AND GLYCOPYRROLATE [Suspect]
     Active Substance: GLYCOPYRROLATE\INDACATEROL MALEATE
     Indication: DYSPNOEA
     Dosage: 1 DF (GLYCOPYRRONIUM BROMIDE 50 MCG, INDACATEROL 110 MCG), QD
     Route: 055

REACTIONS (2)
  - Product use in unapproved indication [Unknown]
  - Lung neoplasm malignant [Fatal]
